FAERS Safety Report 5091772-4 (Version None)
Quarter: 2006Q3

REPORT INFORMATION
  Report Type: 
  Country: None (occurrence: None)
  Receive Date: 20060829
  Receipt Date: 20060518
  Transmission Date: 20061208
  Serious: No
  Sender: FDA-Public Use
  Company Number: US-BRISTOL-MYERS SQUIBB COMPANY-13381397

PATIENT
  Sex: Male

DRUGS (2)
  1. ERBITUX [Suspect]
     Indication: TONSIL CANCER
     Route: 042
  2. MINOCYCLINE HCL [Concomitant]

REACTIONS (1)
  - THROMBOCYTOPENIA [None]
